FAERS Safety Report 5754440-9 (Version None)
Quarter: 2008Q2

REPORT INFORMATION
  Report Type: 
  Country: None (occurrence: None)
  Receive Date: 20080530
  Receipt Date: 20071206
  Transmission Date: 20081010
  Serious: No
  Sender: FDA-Public Use
  Company Number: US-BOEHRINGER INGELHEIM GMBH, GERMANY-2007-BP-11497BP

PATIENT
  Sex: Male
  Weight: 76 kg

DRUGS (24)
  1. MIRAPEX [Suspect]
     Indication: PARKINSON'S DISEASE
     Dates: start: 19991201, end: 20000501
  2. MIRAPEX [Suspect]
     Dates: start: 20031201, end: 20050101
  3. MIRAPEX [Suspect]
     Dates: start: 20050201, end: 20060601
  4. REQUIP [Concomitant]
     Indication: PARKINSON'S DISEASE
  5. AMANTADINE HCL [Concomitant]
     Indication: PARKINSON'S DISEASE
  6. COMTAN [Concomitant]
     Indication: PARKINSON'S DISEASE
  7. CARBO-LEVODOPA ER [Concomitant]
     Indication: PARKINSON'S DISEASE
  8. FLUDROCORT [Concomitant]
     Indication: ADDISON'S DISEASE
  9. HYDROCORT [Concomitant]
     Indication: ADDISON'S DISEASE
  10. POTASSIUM CHLORIDE [Concomitant]
     Indication: HYPOKALAEMIA
  11. LEVOXYL [Concomitant]
     Indication: THYROID DISORDER
  12. TRIAZOLAM [Concomitant]
     Indication: SLEEP DISORDER
  13. ACTONEL [Concomitant]
     Indication: OSTEOPOROSIS
  14. VIAGRA [Concomitant]
  15. SYMMETREL [Concomitant]
  16. SELEGILINE HCL [Concomitant]
  17. ANAPROX [Concomitant]
  18. PAMELOR [Concomitant]
  19. ELDEPRYL [Concomitant]
  20. REGLAN [Concomitant]
  21. SELEGILINE HCL [Concomitant]
  22. DOMPERIDON [Concomitant]
  23. MECLIZINE [Concomitant]
  24. PROPOXYPHENE HYDROCHLORIDE [Concomitant]

REACTIONS (7)
  - ANXIETY [None]
  - COMPULSIVE SHOPPING [None]
  - DEPRESSION [None]
  - EMOTIONAL DISTRESS [None]
  - PAIN [None]
  - PATHOLOGICAL GAMBLING [None]
  - STRESS [None]
